FAERS Safety Report 10404188 (Version 1)
Quarter: 2014Q1

REPORT INFORMATION
  Report Type: Spontaneous
  Country: US (occurrence: None)
  Receive Date: 20131226
  Receipt Date: 20131226
  Transmission Date: 20141002
  Serious: Yes (Other)
  Sender: FDA-Public Use
  Company Number: PHEH2012US000565

PATIENT
  Age: 7 Year
  Sex: Male

DRUGS (2)
  1. TRILEPTAL [Suspect]
     Route: 048
     Dates: start: 200612, end: 201201
  2. KEPPRA [Suspect]

REACTIONS (4)
  - Convulsion [None]
  - Drug ineffective [None]
  - Drug dispensing error [None]
  - Expired drug administered [None]
